FAERS Safety Report 24551607 (Version 1)
Quarter: 2024Q4

REPORT INFORMATION
  Report Type: Spontaneous
  Country: DE (occurrence: DE)
  Receive Date: 20241026
  Receipt Date: 20241026
  Transmission Date: 20250115
  Serious: Yes (Life-Threatening, Other)
  Sender: ALEXION PHARMACEUTICALS
  Company Number: DE-AstraZeneca-CH-00725618A

PATIENT
  Age: 64 Year
  Weight: 76 kg

DRUGS (4)
  1. TREMELIMUMAB [Suspect]
     Active Substance: TREMELIMUMAB
     Indication: Lung neoplasm malignant
  2. TREMELIMUMAB [Suspect]
     Active Substance: TREMELIMUMAB
  3. TREMELIMUMAB [Suspect]
     Active Substance: TREMELIMUMAB
  4. TREMELIMUMAB [Suspect]
     Active Substance: TREMELIMUMAB

REACTIONS (3)
  - Diabetes mellitus [Unknown]
  - Hyperglycaemia [Unknown]
  - Ketoacidosis [Unknown]
